FAERS Safety Report 5122553-0 (Version None)
Quarter: 2006Q4

REPORT INFORMATION
  Report Type: 
  Country: None (occurrence: None)
  Receive Date: 20061009
  Receipt Date: 20061002
  Transmission Date: 20070319
  Serious: Yes (Death, Other)
  Sender: FDA-Public Use
  Company Number: PHBS2006DE15388

PATIENT
  Age: 73 Year
  Sex: Female

DRUGS (2)
  1. AREDIA [Suspect]
     Indication: PLASMACYTOMA
     Dates: start: 20000401, end: 20021201
  2. ZOMETA [Suspect]
     Indication: PLASMACYTOMA
     Dates: start: 20030101

REACTIONS (6)
  - DEATH [None]
  - MAXILLOFACIAL OPERATION [None]
  - OSTEONECROSIS [None]
  - PATHOGEN RESISTANCE [None]
  - PRIMARY SEQUESTRUM [None]
  - SEQUESTRECTOMY [None]
